FAERS Safety Report 5207515-7 (Version None)
Quarter: 2007Q1

REPORT INFORMATION
  Report Type: 
  Country: None (occurrence: None)
  Receive Date: 20070112
  Receipt Date: 20070109
  Transmission Date: 20070707
  Serious: Yes (Life-Threatening)
  Sender: FDA-Public Use
  Company Number: AU-BOEHRINGER INGELHEIM PHARMACEUTICALS, INC.-2007-BP-00349AU

PATIENT
  Sex: Male
  Weight: 90 kg

DRUGS (8)
  1. MOBIC [Suspect]
     Indication: PAIN
     Route: 048
  2. METOPROLOL SUCCINATE [Concomitant]
  3. EPILIM [Concomitant]
     Indication: PAIN
  4. LIPITOR [Concomitant]
     Indication: ESSENTIAL HYPERTENSION
  5. PLAVIX [Concomitant]
  6. RAMIPRIL [Concomitant]
  7. ASPIRIN [Concomitant]
  8. LUVOX [Concomitant]
     Indication: DEPRESSION

REACTIONS (3)
  - CARDIAC ARREST [None]
  - CHEST PAIN [None]
  - PAIN IN EXTREMITY [None]
